FAERS Safety Report 4940985-8 (Version None)
Quarter: 2006Q1

REPORT INFORMATION
  Report Type: 
  Country: None (occurrence: None)
  Receive Date: 20060313
  Receipt Date: 20060224
  Transmission Date: 20060701
  Serious: Yes (Hospitalization, Other)
  Sender: FDA-Public Use
  Company Number: FR-RB-2831-2006

PATIENT
  Age: 31 Year
  Sex: Male

DRUGS (1)
  1. BUPRENORPHINE HCL [Suspect]
     Indication: DRUG DEPENDENCE
     Dosage: DOSE UNKNOWN
     Route: 042
     Dates: end: 20010924

REACTIONS (7)
  - ARTHRITIS [None]
  - ARTHROPATHY [None]
  - INJECTION SITE REACTION [None]
  - INTENTIONAL DRUG MISUSE [None]
  - KLEBSIELLA INFECTION [None]
  - MITRAL VALVE DISEASE [None]
  - PERIPHERAL ISCHAEMIA [None]
